FAERS Safety Report 8537992-5 (Version None)
Quarter: 2012Q3

REPORT INFORMATION
  Report Type: 
  Country: None (occurrence: None)
  Receive Date: 20120725
  Receipt Date: 20120723
  Transmission Date: 20120928
  Serious: Yes (Death, Hospitalization, Other)
  Sender: FDA-Public Use
  Company Number: US-009507513-2011SP050842

PATIENT

DRUGS (3)
  1. NUVARING [Suspect]
     Dates: start: 20090801
  2. NUVARING [Suspect]
     Indication: CONTRACEPTION
     Dates: start: 20090901, end: 20091030
  3. PROZAC [Suspect]
     Indication: DEPRESSION
     Dates: start: 20040101

REACTIONS (4)
  - OLIGOHYDRAMNIOS [None]
  - DRUG SCREEN POSITIVE [None]
  - PULMONARY EMBOLISM [None]
  - PREMATURE DELIVERY [None]
